FAERS Safety Report 7142138-4 (Version None)
Quarter: 2010Q4

REPORT INFORMATION
  Report Type: 
  Country: None (occurrence: None)
  Receive Date: 20101203
  Receipt Date: 20101203
  Transmission Date: 20110411
  Serious: Yes (Other)
  Sender: FDA-Public Use
  Company Number: None

PATIENT
  Age: 64 Year
  Sex: Female
  Weight: 110 kg

DRUGS (2)
  1. ARICEPT [Suspect]
     Indication: DEMENTIA
     Dosage: 1/2 TAB -5MG- DAILY PO
     Route: 048
     Dates: start: 20061204, end: 20070607
  2. ARICEPT [Suspect]
     Indication: DEMENTIA
     Dosage: 1 TAB -10MG- DAILY PO
     Route: 048
     Dates: start: 20080608

REACTIONS (3)
  - COMPLEX PARTIAL SEIZURES [None]
  - SUPRAVENTRICULAR TACHYCARDIA [None]
  - SYNCOPE [None]
